FAERS Safety Report 5787264-7 (Version None)
Quarter: 2008Q2

REPORT INFORMATION
  Report Type: 
  Country: None (occurrence: None)
  Receive Date: 20080625
  Receipt Date: 20080515
  Transmission Date: 20081010
  Serious: Yes (Other)
  Sender: FDA-Public Use
  Company Number: PHHY2008GB10641

PATIENT
  Sex: Male

DRUGS (1)
  1. TEGRETOL [Suspect]
     Dosage: UNK
     Dates: start: 19950101

REACTIONS (5)
  - ANTINUCLEAR ANTIBODY POSITIVE [None]
  - BLOOD SODIUM DECREASED [None]
  - LIVER FUNCTION TEST ABNORMAL [None]
  - SKIN REACTION [None]
  - STOMACH DISCOMFORT [None]
